FAERS Safety Report 6034682-8 (Version None)
Quarter: 2009Q1

REPORT INFORMATION
  Report Type: 
  Country: None (occurrence: None)
  Receive Date: 20090108
  Receipt Date: 20090108
  Transmission Date: 20090719
  Serious: Yes (Hospitalization)
  Sender: FDA-Public Use
  Company Number: None

PATIENT
  Sex: Male
  Weight: 109 kg

DRUGS (9)
  1. IMATINIB MESYLATE [Suspect]
     Indication: ASTROCYTOMA
     Dosage: 400 MG QD PO
     Route: 048
     Dates: start: 20080115
  2. HYDROXYUREA [Suspect]
     Indication: ASTROCYTOMA
     Dosage: 500 MG BID PO
     Route: 048
     Dates: start: 20080115
  3. DEXAMETHASONE [Concomitant]
  4. LAMICTAL [Concomitant]
  5. LISINOPRIL [Concomitant]
  6. ZOFRAN [Concomitant]
  7. FISH OIL [Concomitant]
  8. LOVAZA [Concomitant]
  9. MULTIVIT [Concomitant]

REACTIONS (6)
  - ATAXIA [None]
  - BRAIN OEDEMA [None]
  - DIZZINESS [None]
  - HEADACHE [None]
  - NAUSEA [None]
  - VOMITING [None]
